FAERS Safety Report 18346982 (Version 3)
Quarter: 2020Q4

REPORT INFORMATION
  Report Type: Spontaneous
  Country: US (occurrence: US)
  Receive Date: 20201005
  Receipt Date: 20201020
  Transmission Date: 20210114
  Serious: Yes (Other)
  Sender: FDA-Public Use
  Company Number: US-AMGEN-USASP2020159218

PATIENT
  Age: 58 Year
  Sex: Female
  Weight: 96.2 kg

DRUGS (8)
  1. DULOXETINE. [Concomitant]
     Active Substance: DULOXETINE
     Dosage: UNK
  2. OTEZLA [Suspect]
     Active Substance: APREMILAST
     Indication: PSORIASIS
     Dosage: 30 MILLIGRAM, BID
     Route: 048
     Dates: start: 2019
  3. GLIPIZIDE. [Concomitant]
     Active Substance: GLIPIZIDE
     Dosage: UNK
  4. LANTUS [Concomitant]
     Active Substance: INSULIN GLARGINE
     Dosage: UNK
     Route: 065
  5. TEMOVATE [Concomitant]
     Active Substance: CLOBETASOL PROPIONATE
     Indication: PSORIASIS
     Dosage: UNK
     Route: 061
     Dates: start: 20190807, end: 20200227
  6. LOVASTATIN. [Concomitant]
     Active Substance: LOVASTATIN
     Dosage: UNK
  7. HYDROCORTISONE. [Concomitant]
     Active Substance: HYDROCORTISONE
     Indication: PSORIASIS
     Dosage: UNK
     Route: 065
     Dates: start: 20190807
  8. CLOBETASOL [Concomitant]
     Active Substance: CLOBETASOL
     Indication: PSORIASIS
     Dosage: UNK
     Route: 061
     Dates: start: 20190807, end: 20200227

REACTIONS (21)
  - Stress [Unknown]
  - Skin injury [Unknown]
  - Skin mass [Unknown]
  - Productive cough [Unknown]
  - Diarrhoea [Unknown]
  - Dyspnoea [Unknown]
  - Depression [Unknown]
  - Nausea [Unknown]
  - Abdominal pain [Unknown]
  - Cough [Unknown]
  - Rash [Unknown]
  - Product dose omission issue [Unknown]
  - Night sweats [Unknown]
  - Sinus congestion [Unknown]
  - Headache [Unknown]
  - Suicidal ideation [Unknown]
  - Psoriasis [Recovering/Resolving]
  - Pyrexia [Unknown]
  - Weight decreased [Unknown]
  - Chills [Unknown]
  - Chest pain [Unknown]

NARRATIVE: CASE EVENT DATE: 2019
